FAERS Safety Report 8240217-1 (Version None)
Quarter: 2012Q1

REPORT INFORMATION
  Report Type: 
  Country: None (occurrence: None)
  Receive Date: 20120328
  Receipt Date: 20120325
  Transmission Date: 20120608
  Serious: Yes (Other)
  Sender: FDA-Public Use
  Company Number: DE-BAYER-2012-029852

PATIENT
  Age: 72 Year
  Sex: Male

DRUGS (1)
  1. BETASERON [Suspect]
     Dosage: UNK

REACTIONS (3)
  - PRURITUS [None]
  - ARTHRALGIA [None]
  - HAEMORRHAGIC DIATHESIS [None]
